FAERS Safety Report 4856127-3 (Version None)
Quarter: 2005Q4

REPORT INFORMATION
  Report Type: 
  Country: None (occurrence: None)
  Receive Date: 20051216
  Receipt Date: 20050915
  Transmission Date: 20060501
  Serious: Yes (Hospitalization, Other)
  Sender: FDA-Public Use
  Company Number: US-MERCK-0509USA02427

PATIENT
  Age: 69 Year
  Sex: Male
  Weight: 81 kg

DRUGS (19)
  1. VIOXX [Suspect]
     Indication: ARTHRITIS
     Route: 048
     Dates: start: 19990914, end: 20040930
  2. VIOXX [Suspect]
     Indication: PAIN
     Route: 048
     Dates: start: 19990914, end: 20040930
  3. PEPCID [Concomitant]
     Route: 065
  4. PRAVACHOL [Concomitant]
     Indication: BLOOD PRESSURE
     Route: 065
     Dates: start: 20010111
  5. AVAPRO [Concomitant]
     Indication: HYPERTENSION
     Route: 065
  6. VANTIN [Concomitant]
     Indication: INFECTION
     Route: 065
  7. RETIN-A [Concomitant]
     Route: 065
  8. RHINOCORT [Concomitant]
     Indication: RESPIRATORY DISORDER
     Route: 065
  9. TENORMIN [Concomitant]
     Indication: HYPERTENSION
     Route: 048
  10. TENORMIN [Concomitant]
     Indication: PROPHYLAXIS
     Route: 048
  11. ASCORBIC ACID [Concomitant]
     Indication: LIPIDS INCREASED
     Route: 065
  12. VITAMIN E [Concomitant]
     Indication: LIPIDS INCREASED
     Route: 065
  13. VITAMINS (UNSPECIFIED) [Concomitant]
     Route: 065
  14. ASPIRIN [Concomitant]
     Indication: PROPHYLAXIS
     Route: 065
  15. LORATADINE [Concomitant]
     Indication: RESPIRATORY DISORDER
     Route: 065
  16. NITROGLYCERIN [Concomitant]
     Route: 065
  17. TRIAMTERENE [Concomitant]
     Indication: OEDEMA
     Route: 065
     Dates: start: 19990918, end: 19990101
  18. LIPITOR [Concomitant]
     Indication: BLOOD CHOLESTEROL INCREASED
     Route: 065
  19. TYLENOL [Concomitant]
     Indication: PAIN
     Route: 065

REACTIONS (25)
  - ACUTE MYOCARDIAL INFARCTION [None]
  - ANGINA UNSTABLE [None]
  - ANXIETY [None]
  - ARTHROPATHY [None]
  - ATRIOVENTRICULAR BLOCK FIRST DEGREE [None]
  - ATRIOVENTRICULAR BLOCK SECOND DEGREE [None]
  - BODY TEMPERATURE DECREASED [None]
  - CARDIOVASCULAR DISORDER [None]
  - CATARACT OPERATION [None]
  - CEREBROVASCULAR DISORDER [None]
  - CORONARY ARTERY DISEASE [None]
  - DIZZINESS [None]
  - DYSPEPSIA [None]
  - FATIGUE [None]
  - FEELING ABNORMAL [None]
  - FOREIGN BODY TRAUMA [None]
  - HEART RATE IRREGULAR [None]
  - MYOCARDIAL ISCHAEMIA [None]
  - OEDEMA [None]
  - PAIN IN EXTREMITY [None]
  - SKIN LACERATION [None]
  - TRANSIENT ISCHAEMIC ATTACK [None]
  - UPPER RESPIRATORY TRACT CONGESTION [None]
  - VERTIGO [None]
  - VISUAL DISTURBANCE [None]
